FAERS Safety Report 11588350 (Version 1)
Quarter: 2015Q4

REPORT INFORMATION
  Report Type: Spontaneous
  Country: US (occurrence: None)
  Receive Date: 20151001
  Receipt Date: 20151001
  Transmission Date: 20160304
  Serious: No
  Sender: FDA-Public Use
  Company Number: None

PATIENT
  Age: 45 Year
  Sex: Female
  Weight: 82.56 kg

DRUGS (20)
  1. BLOOD GLUCOSE TEST STRIPS [Concomitant]
  2. COZAAR [Concomitant]
     Active Substance: LOSARTAN POTASSIUM
  3. COLACE [Concomitant]
     Active Substance: DOCUSATE SODIUM
  4. METFORMIN [Concomitant]
     Active Substance: METFORMIN HYDROCHLORIDE
  5. TRAMADOL. [Concomitant]
     Active Substance: TRAMADOL
  6. GLATOPA [Suspect]
     Active Substance: GLATIRAMER ACETATE
     Indication: MULTIPLE SCLEROSIS
  7. GABAPENTIN. [Concomitant]
     Active Substance: GABAPENTIN
  8. HUMAGLOG [Concomitant]
  9. ZOLPIDEM [Concomitant]
     Active Substance: ZOLPIDEM\ZOLPIDEM TARTRATE
  10. LIPITOR [Concomitant]
     Active Substance: ATORVASTATIN CALCIUM
  11. PEN NEEDLE [Concomitant]
  12. ALBUTEROL SULFATE. [Concomitant]
     Active Substance: ALBUTEROL SULFATE
  13. LIDOCAINE. [Concomitant]
     Active Substance: LIDOCAINE
  14. BACLOFEN. [Concomitant]
     Active Substance: BACLOFEN
  15. COPAXONE [Concomitant]
     Active Substance: GLATIRAMER ACETATE
  16. VITAMIN D [Concomitant]
     Active Substance: CHOLECALCIFEROL
  17. ADVAIR HFA [Concomitant]
     Active Substance: FLUTICASONE PROPIONATE\SALMETEROL XINAFOATE
  18. DULOXETINE. [Concomitant]
     Active Substance: DULOXETINE
  19. HYDROCHOROTHIAZIDE [Concomitant]
     Active Substance: HYDROCHLOROTHIAZIDE
  20. VITAMN D3 [Concomitant]

REACTIONS (4)
  - Product substitution issue [None]
  - Hypersensitivity [None]
  - Contusion [None]
  - Urticaria [None]

NARRATIVE: CASE EVENT DATE: 20150811
